FAERS Safety Report 15300569 (Version 1)
Quarter: 2018Q3

REPORT INFORMATION
  Report Type: Spontaneous
  Country: GB (occurrence: GB)
  Receive Date: 20180821
  Receipt Date: 20180821
  Transmission Date: 20181010
  Serious: Yes (Other)
  Sender: FDA-Public Use
  Company Number: PHHY2018GB076485

PATIENT
  Age: 67 Year
  Sex: Female
  Weight: 59.2 kg

DRUGS (6)
  1. PACLITAXEL. [Suspect]
     Active Substance: PACLITAXEL
     Dosage: 22 ML, QD
     Route: 042
     Dates: start: 20180618, end: 20180618
  2. SODIUM CHLORIDE. [Suspect]
     Active Substance: SODIUM CHLORIDE
     Indication: MEDICATION DILUTION
     Dosage: 225 MG, UNK (CYCLICAL)
     Route: 042
     Dates: start: 20180412
  3. SODIUM CHLORIDE. [Suspect]
     Active Substance: SODIUM CHLORIDE
     Dosage: 1 NCI, QD (22 ML OF THE COMPOUNDED PRODUCT)
     Route: 042
     Dates: start: 20180618, end: 20180618
  4. SODIUM CHLORIDE. [Suspect]
     Active Substance: SODIUM CHLORIDE
     Dosage: 1 NCI, QD
     Route: 042
     Dates: start: 201806
  5. PACLITAXEL. [Suspect]
     Active Substance: PACLITAXEL
     Indication: PRODUCT USED FOR UNKNOWN INDICATION
     Dosage: 225 MG, QD
     Route: 042
     Dates: start: 20180412
  6. PACLITAXEL. [Suspect]
     Active Substance: PACLITAXEL
     Dosage: 1 NCI, QD (225 MG PACLITAXEL IN SODIUM CHLORIDE)
     Route: 042
     Dates: start: 201806

REACTIONS (3)
  - Nausea [Recovered/Resolved]
  - Feeling hot [Unknown]
  - Vomiting [Recovered/Resolved]

NARRATIVE: CASE EVENT DATE: 20180618
